FAERS Safety Report 6210926-4 (Version None)
Quarter: 2009Q2

REPORT INFORMATION
  Report Type: 
  Country: None (occurrence: None)
  Receive Date: 20090601
  Receipt Date: 20090522
  Transmission Date: 20091009
  Serious: Yes (Other)
  Sender: FDA-Public Use
  Company Number: AR-ABBOTT-09P-007-0575358-00

PATIENT
  Age: 18 Year
  Sex: Female
  Weight: 68 kg

DRUGS (2)
  1. VALCOTE [Suspect]
     Indication: IMPULSIVE BEHAVIOUR
     Route: 048
     Dates: start: 20090301
  2. VALCOTE [Suspect]
     Route: 048
     Dates: start: 20071201, end: 20090301

REACTIONS (2)
  - CORNEAL DEPOSITS [None]
  - MYOPIA [None]
